FAERS Safety Report 5632195-6 (Version None)
Quarter: 2008Q1

REPORT INFORMATION
  Report Type: 
  Country: None (occurrence: None)
  Receive Date: 20080220
  Receipt Date: 20080213
  Transmission Date: 20080703
  Serious: Yes (Hospitalization)
  Sender: FDA-Public Use
  Company Number: JP-ASTRAZENECA-2008AP00764

PATIENT
  Age: 52 Year
  Sex: Male
  Weight: 60 kg

DRUGS (11)
  1. IRESSA [Suspect]
     Indication: NON-SMALL CELL LUNG CANCER
     Route: 048
     Dates: start: 20071218, end: 20080115
  2. IRESSA [Suspect]
     Route: 048
     Dates: start: 20080117, end: 20080117
  3. ZYLORIC [Suspect]
     Indication: HYPERURICAEMIA
     Route: 048
     Dates: start: 20071226, end: 20080117
  4. TAKEPRON [Concomitant]
     Indication: GASTRITIS
     Route: 048
     Dates: start: 20070608, end: 20071217
  5. MOHRUS TAPE [Concomitant]
     Indication: BACK PAIN
     Route: 003
     Dates: start: 20070704, end: 20080122
  6. MAGMITT [Concomitant]
     Indication: CONSTIPATION
     Route: 048
     Dates: start: 20070821, end: 20080206
  7. PYDOXAL [Concomitant]
     Indication: NEUROPATHY PERIPHERAL
     Route: 048
     Dates: start: 20070828, end: 20080117
  8. MARZULENE-S [Concomitant]
     Indication: GASTRITIS
     Route: 048
     Dates: start: 20070828, end: 20080206
  9. MEXITIL [Concomitant]
     Indication: NEUROPATHY PERIPHERAL
     Route: 048
     Dates: start: 20071120, end: 20080117
  10. ALLOID G [Concomitant]
     Indication: GASTRITIS
     Route: 048
     Dates: start: 20080108, end: 20080206
  11. BIOFERMIN [Concomitant]
     Indication: GASTROENTERITIS
     Route: 048
     Dates: start: 20080110, end: 20080117

REACTIONS (3)
  - HEPATIC ENZYME INCREASED [None]
  - PYREXIA [None]
  - RASH [None]
